FAERS Safety Report 6714426-4 (Version None)
Quarter: 2010Q2

REPORT INFORMATION
  Report Type: 
  Country: None (occurrence: None)
  Receive Date: 20100506
  Receipt Date: 20100426
  Transmission Date: 20101027
  Serious: Yes (Hospitalization, Other)
  Sender: FDA-Public Use
  Company Number: BR-ABBOTT-09P-020-0596325-00

PATIENT
  Sex: Female
  Weight: 54 kg

DRUGS (10)
  1. HUMIRA [Suspect]
     Indication: RHEUMATOID ARTHRITIS
     Route: 058
     Dates: start: 20080101, end: 20090601
  2. HUMIRA [Suspect]
  3. METHOTREXATE [Concomitant]
     Indication: RHEUMATOID ARTHRITIS
     Route: 048
     Dates: start: 20050101, end: 20090601
  4. METHOTREXATE [Concomitant]
  5. PREDNISONE [Concomitant]
     Indication: RHEUMATOID ARTHRITIS
     Route: 048
     Dates: start: 20050101
  6. OMEPRAZOLE [Concomitant]
     Indication: PROPHYLAXIS AGAINST GASTROINTESTINAL ULCER
     Route: 048
     Dates: start: 20050101, end: 20090301
  7. OMEPRAZOLE [Concomitant]
     Indication: GASTRITIS PROPHYLAXIS
  8. RIVOTRIL [Concomitant]
     Indication: SLEEP DISORDER THERAPY
     Route: 048
     Dates: start: 20060101
  9. OLCADIL [Concomitant]
     Indication: DEPRESSION
     Route: 048
     Dates: start: 20060101, end: 20080101
  10. FOLIC ACID [Concomitant]
     Indication: PROPHYLAXIS
     Route: 048
     Dates: start: 20050101

REACTIONS (18)
  - ABDOMINAL PAIN [None]
  - ANAEMIA [None]
  - ARTHRALGIA [None]
  - ASTHENIA [None]
  - CHEST PAIN [None]
  - COLD SWEAT [None]
  - DIZZINESS [None]
  - ERYTHEMA [None]
  - GASTROINTESTINAL DISORDER [None]
  - HAEMATOCHEZIA [None]
  - HEADACHE [None]
  - HYPOTENSION [None]
  - INSOMNIA [None]
  - INTESTINAL HAEMORRHAGE [None]
  - JOINT SWELLING [None]
  - MENSTRUATION DELAYED [None]
  - OEDEMA PERIPHERAL [None]
  - PAIN [None]
